FAERS Safety Report 6983340-1 (Version None)
Quarter: 2010Q3

REPORT INFORMATION
  Report Type: 
  Country: None (occurrence: None)
  Receive Date: 20100910
  Receipt Date: 20100903
  Transmission Date: 20110219
  Serious: Yes (Death)
  Sender: FDA-Public Use
  Company Number: 2010090020

PATIENT
  Age: 60 Year
  Sex: Male

DRUGS (15)
  1. ONSOLIS [Suspect]
     Indication: CANCER PAIN
     Dosage: TITRATED UP TO 4-200 MCG FILMS (UP TO 4 TIMES DAILY, AS NEEDED), BU
     Route: 002
     Dates: start: 20100529
  2. THERAGRAN VITAMINS (VITAMINS) [Concomitant]
  3. PRILOSEC (OMEPRAZOLE) [Concomitant]
  4. REMERON [Concomitant]
  5. PULMICORT [Concomitant]
  6. ALBUTEROL [Concomitant]
  7. OXYCODONE IR (OXYCODONE) [Concomitant]
  8. OXYCODONE HCL [Concomitant]
  9. CRESTOR [Concomitant]
  10. RANITIDINE [Concomitant]
  11. MIRALAX [Concomitant]
  12. ATIVAN [Concomitant]
  13. DUONEB (IPRATROPIUM BROMIDE, ALBUTEROL SULFATE) [Concomitant]
  14. TRICOR [Concomitant]
  15. CARDIZEM CD (DILTIAZEM) [Concomitant]

REACTIONS (2)
  - LUNG CANCER METASTATIC [None]
  - MALIGNANT NEOPLASM PROGRESSION [None]
